FAERS Safety Report 24135866 (Version 1)
Quarter: 2024Q3

REPORT INFORMATION
  Report Type: Spontaneous
  Country: US (occurrence: US)
  Receive Date: 20240725
  Receipt Date: 20240725
  Transmission Date: 20241016
  Serious: No
  Sender: JOHNSON AND JOHNSON
  Company Number: US-JNJFOC-20240759402

PATIENT
  Age: 15 Year
  Sex: Male

DRUGS (4)
  1. RISPERDAL [Suspect]
     Active Substance: RISPERIDONE
     Indication: Mood swings
     Dosage: VARYING DOSES OF 0.5 TABLET DAILY, 1 MG TABLET NIGHTLY AND 3 MG TABLET NIGHTLY
     Route: 048
     Dates: start: 201501, end: 2015
  2. RISPERDAL [Suspect]
     Active Substance: RISPERIDONE
     Indication: Hallucination
  3. RISPERDAL [Suspect]
     Active Substance: RISPERIDONE
     Indication: Anger
  4. RISPERIDONE [Suspect]
     Active Substance: RISPERIDONE
     Indication: Product used for unknown indication
     Route: 065

REACTIONS (2)
  - Gynaecomastia [Unknown]
  - Product dose omission issue [Unknown]

NARRATIVE: CASE EVENT DATE: 20150201
